FAERS Safety Report 13569206 (Version 1)
Quarter: 2017Q2

REPORT INFORMATION
  Report Type: Spontaneous
  Country: GB (occurrence: GB)
  Receive Date: 20170522
  Receipt Date: 20170522
  Transmission Date: 20170830
  Serious: Yes (Other)
  Sender: FDA-Public Use
  Company Number: GB-MYLANLABS-2017M1029928

PATIENT

DRUGS (4)
  1. AMOXICILLIN. [Concomitant]
     Active Substance: AMOXICILLIN
  2. RAMIPRIL. [Concomitant]
     Active Substance: RAMIPRIL
     Indication: HYPERTENSION
  3. DOXYCYCLINE. [Suspect]
     Active Substance: DOXYCYCLINE
     Indication: LOWER RESPIRATORY TRACT INFECTION
     Dosage: 200MG THEN 100MG PER DAY.
     Route: 048
     Dates: start: 20161111
  4. DOXYCYCLINE. [Suspect]
     Active Substance: DOXYCYCLINE
     Dosage: 200MG THEN 100MG PER DAY.
     Route: 048
     Dates: end: 20161116

REACTIONS (4)
  - Asthenia [Recovered/Resolved with Sequelae]
  - Pancreatitis [Unknown]
  - Vomiting [Recovered/Resolved with Sequelae]
  - Chromaturia [Recovered/Resolved with Sequelae]

NARRATIVE: CASE EVENT DATE: 20161112
